FAERS Safety Report 7455701-8 (Version None)
Quarter: 2011Q2

REPORT INFORMATION
  Report Type: 
  Country: None (occurrence: None)
  Receive Date: 20110503
  Receipt Date: 20110502
  Transmission Date: 20111010
  Serious: Yes (Hospitalization)
  Sender: FDA-Public Use
  Company Number: IT-SANOFI-AVENTIS-2011SA026774

PATIENT
  Age: 85 Year
  Sex: Female

DRUGS (4)
  1. BISOPROLOL FUMARATE [Suspect]
     Indication: BLOOD PRESSURE INCREASED
     Route: 048
     Dates: start: 20110401, end: 20110424
  2. COUMADIN [Concomitant]
     Route: 065
  3. LASIX [Suspect]
     Route: 048
     Dates: start: 20110401, end: 20110424
  4. LANSOX [Concomitant]
     Route: 048

REACTIONS (3)
  - MALAISE [None]
  - PALPITATIONS [None]
  - ASTHENIA [None]
